FAERS Safety Report 8261699-5 (Version None)
Quarter: 2012Q2

REPORT INFORMATION
  Report Type: 
  Country: None (occurrence: None)
  Receive Date: 20120402
  Receipt Date: 20120321
  Transmission Date: 20120825
  Serious: Yes (Other)
  Sender: FDA-Public Use
  Company Number: PHHY2012JP025091

PATIENT
  Sex: Male

DRUGS (2)
  1. LUCENTIS [Suspect]
     Indication: AGE-RELATED MACULAR DEGENERATION
     Dates: start: 20111201, end: 20111201
  2. VISUDYNE [Suspect]
     Indication: AGE-RELATED MACULAR DEGENERATION

REACTIONS (7)
  - VISION BLURRED [None]
  - RETINAL OEDEMA [None]
  - RETINAL VASCULAR THROMBOSIS [None]
  - VISUAL ACUITY REDUCED [None]
  - AGE-RELATED MACULAR DEGENERATION [None]
  - VISUAL IMPAIRMENT [None]
  - CONDITION AGGRAVATED [None]
